FAERS Safety Report 15360812 (Version 1)
Quarter: 2018Q3

REPORT INFORMATION
  Report Type: Spontaneous
  Country: US (occurrence: US)
  Receive Date: 20180907
  Receipt Date: 20180907
  Transmission Date: 20181010
  Serious: No
  Sender: FDA-Public Use
  Company Number: US-LEO PHARMA-310889

PATIENT
  Sex: Female

DRUGS (1)
  1. PICATO [Suspect]
     Active Substance: INGENOL MEBUTATE
     Indication: ACTINIC KERATOSIS
     Route: 061
     Dates: start: 20180830, end: 20180901

REACTIONS (8)
  - Application site vesicles [Unknown]
  - Ocular hyperaemia [Recovered/Resolved]
  - Application site discolouration [Unknown]
  - Application site exfoliation [Unknown]
  - Application site dryness [Not Recovered/Not Resolved]
  - Application site erythema [Not Recovered/Not Resolved]
  - Application site erosion [Unknown]
  - Eye swelling [Recovered/Resolved]
